FAERS Safety Report 8601800 (Version 6)
Quarter: 2013Q3

REPORT INFORMATION
  Report Type: Report from Study
  Country: US (occurrence: US)
  Receive Date: 20120606
  Receipt Date: 20130729
  Transmission Date: 20140515
  Serious: No
  Sender: FDA-Public Use
  Company Number: US-UCBSA-058116

PATIENT
  Age: 28 Year
  Sex: Female

DRUGS (8)
  1. KEPPRA [Suspect]
     Indication: EPILEPSY
     Dosage: 4.5 YEARS
     Route: 048
  2. LEVETIRACETAM [Concomitant]
     Indication: EPILEPSY
  3. FOLIC ACID [Concomitant]
     Route: 048
     Dates: start: 20110901
  4. PRENATAL VITAMINS [Concomitant]
     Indication: PREGNANCY
     Dosage: 1 TABLET DAILY
     Route: 048
     Dates: start: 20110901
  5. TYLENOL WITH CODEINE [Concomitant]
     Dosage: 300 MG - 30 MG, 1 TAB BY MOUTH, ONCE
     Route: 048
  6. KEFLEX [Concomitant]
     Dosage: 500 MG,
     Route: 048
  7. FERROUS SULPHATE [Concomitant]
     Route: 048
  8. IBU [Concomitant]
     Dosage: 600 MG, BY MOUTH, ONCE
     Route: 048

REACTIONS (3)
  - Anaemia [Not Recovered/Not Resolved]
  - Pregnancy [Recovered/Resolved]
  - Breast feeding [Unknown]
